FAERS Safety Report 7203348-0 (Version None)
Quarter: 2010Q4

REPORT INFORMATION
  Report Type: 
  Country: None (occurrence: None)
  Receive Date: 20101215
  Receipt Date: 20101129
  Transmission Date: 20110411
  Serious: Yes (Death, Hospitalization)
  Sender: FDA-Public Use
  Company Number: CIP10002992

PATIENT
  Age: 83 Year
  Sex: Female

DRUGS (15)
  1. FURADANTIN [Suspect]
     Indication: URINARY TRACT INFECTION
     Dosage: 50 MG 3 TIMES DAILY, ORAL
     Route: 048
     Dates: start: 20101026, end: 20101029
  2. ALLOPURINOL [Suspect]
     Indication: GOUT
     Dosage: 200 MG DAILY, ORAL
     Route: 048
     Dates: start: 20101008, end: 20101029
  3. VASTAREL (TRIMETAZIDINE HYDROCHLORIDE) [Concomitant]
  4. RENITEC /00574901/ (ENALAPRIL) [Concomitant]
  5. BUMETANIDE [Concomitant]
  6. DIGOXIN [Concomitant]
  7. PREVISCAN /00789001/ (FLUINDIONE) [Concomitant]
  8. FENOFIBRATE [Concomitant]
  9. LEVOTHYROX (LEVOTHYROXINE SODIUM) [Concomitant]
  10. PIASCLEDINE /00809501/ (PIAS) [Concomitant]
  11. CALTRATE /00108001/ (CALCIUM CARBONATE) [Concomitant]
  12. PROTELOS /01556702/ (STRONTIUM RANELATE) [Concomitant]
  13. COLCHICINE [Concomitant]
  14. OMEPRAZOLE [Concomitant]
  15. MOTILIUM /00498201/ (DOMPERIDONE) [Concomitant]

REACTIONS (14)
  - ACUTE RESPIRATORY DISTRESS SYNDROME [None]
  - CARDIO-RESPIRATORY ARREST [None]
  - CIRCULATORY COLLAPSE [None]
  - DRUG RASH WITH EOSINOPHILIA AND SYSTEMIC SYMPTOMS [None]
  - EJECTION FRACTION DECREASED [None]
  - GENERAL PHYSICAL HEALTH DETERIORATION [None]
  - LIVER INJURY [None]
  - LOSS OF CONSCIOUSNESS [None]
  - MOUTH ULCERATION [None]
  - MULTI-ORGAN FAILURE [None]
  - RENAL FAILURE ACUTE [None]
  - SHOCK [None]
  - TACHYCARDIA [None]
  - TUBULOINTERSTITIAL NEPHRITIS [None]
